FAERS Safety Report 25335691 (Version 3)
Quarter: 2025Q2

REPORT INFORMATION
  Report Type: Spontaneous
  Country: US (occurrence: US)
  Receive Date: 20250520
  Receipt Date: 20250620
  Transmission Date: 20250717
  Serious: No
  Sender: PFIZER
  Company Number: US-PFIZER INC-PV202400050332

PATIENT
  Age: 15 Year
  Sex: Male

DRUGS (4)
  1. NGENLA [Suspect]
     Active Substance: SOMATROGON-GHLA
     Indication: Hypopituitarism
     Dosage: 48 MG, WEEKLY
  2. NGENLA [Suspect]
     Active Substance: SOMATROGON-GHLA
     Indication: Growth hormone deficiency
     Dosage: 60 MG, WEEKLY
  3. NGENLA [Suspect]
     Active Substance: SOMATROGON-GHLA
     Indication: Failure to thrive
  4. LETROZOLE [Concomitant]
     Active Substance: LETROZOLE
     Dosage: 2.5 MG ORAL DAILY
     Route: 048

REACTIONS (1)
  - Drug ineffective [Unknown]
